FAERS Safety Report 9837016 (Version 1)
Quarter: 2014Q1

REPORT INFORMATION
  Report Type: Spontaneous
  Country: US (occurrence: US)
  Receive Date: 20140123
  Receipt Date: 20140123
  Transmission Date: 20141002
  Serious: No
  Sender: FDA-Public Use
  Company Number: US-PFIZER INC-2014018562

PATIENT
  Age: 74 Year
  Sex: Female
  Weight: 81.63 kg

DRUGS (9)
  1. ZOLOFT [Suspect]
     Indication: BACK PAIN
     Dosage: 100 MG, DAILY
     Dates: start: 201401
  2. PLAVIX [Concomitant]
     Dosage: 75 MG, DAILY
  3. LIPITOR [Concomitant]
     Dosage: 80 MG, DAILY
  4. METOPROLOL [Concomitant]
     Dosage: 25 MG, 2X/DAY
  5. TRIAMTERENE [Concomitant]
     Dosage: 37.5/25 MG, DAILY
  6. ZETIA [Concomitant]
     Dosage: 10 MG, DAILY
  7. ASPIRIN [Concomitant]
     Dosage: 81 MG, DAILY
  8. CELEBREX [Concomitant]
     Indication: BACK PAIN
     Dosage: UNK
  9. CELEBREX [Concomitant]
     Dosage: UNK
     Dates: start: 20140119

REACTIONS (2)
  - Drug ineffective for unapproved indication [Unknown]
  - Off label use [Unknown]
